FAERS Safety Report 5814380-3 (Version None)
Quarter: 2008Q3

REPORT INFORMATION
  Report Type: 
  Country: None (occurrence: None)
  Receive Date: 20080718
  Receipt Date: 20080715
  Transmission Date: 20090109
  Serious: Yes (Other)
  Sender: FDA-Public Use
  Company Number: US-BRISTOL-MYERS SQUIBB COMPANY-14248504

PATIENT
  Age: 38 Year
  Sex: Female

DRUGS (5)
  1. ATAZANAVIR [Suspect]
     Indication: HIV INFECTION
     Route: 048
     Dates: start: 20070901
  2. AZIDOTHYMIDINE [Suspect]
     Indication: HIV INFECTION
     Route: 048
     Dates: start: 20070901, end: 20080401
  3. TRUVADA [Suspect]
     Indication: HIV INFECTION
     Dosage: 1 DOSAGE FORM: TAB(DOSE VALUE NOT CLEAR)
     Route: 048
     Dates: start: 20070901
  4. RITONAVIR [Suspect]
     Indication: HIV INFECTION
     Route: 048
     Dates: start: 20080401
  5. MULTI-VITAMIN [Concomitant]

REACTIONS (4)
  - ABORTION INDUCED [None]
  - CARDIAC DISORDER [None]
  - HYDROCEPHALUS [None]
  - PREGNANCY [None]
